FAERS Safety Report 19053008 (Version 1)
Quarter: 2021Q1

REPORT INFORMATION
  Report Type: Report from Study
  Country: ES (occurrence: ES)
  Receive Date: 20210325
  Receipt Date: 20210325
  Transmission Date: 20210420
  Serious: Yes (Other)
  Sender: FDA-Public Use
  Company Number: ES-SUN PHARMACEUTICAL INDUSTRIES LTD-2021RR-287411

PATIENT
  Age: 42 Year
  Sex: Male

DRUGS (3)
  1. GEMCITABINE. [Suspect]
     Active Substance: GEMCITABINE
     Indication: LUNG ADENOCARCINOMA STAGE III
     Dosage: UNK, A TOTAL OF FOUR 21?DAY CYCLES
     Route: 065
     Dates: start: 20180822
  2. PACLITAXEL. [Suspect]
     Active Substance: PACLITAXEL
     Indication: LUNG ADENOCARCINOMA STAGE III
     Dosage: UNK, A TOTAL OF FOUR 21?DAY CYCLES
     Route: 065
     Dates: start: 20180822
  3. CISPLATIN. [Suspect]
     Active Substance: CISPLATIN
     Indication: LUNG ADENOCARCINOMA STAGE III
     Dosage: UNK, A TOTAL OF FOUR 21?DAY CYCLES
     Route: 065
     Dates: start: 20180822

REACTIONS (4)
  - Nausea [Unknown]
  - Disease progression [Unknown]
  - Therapeutic product effect incomplete [Unknown]
  - Asthenia [Unknown]
